FAERS Safety Report 11520034 (Version 1)
Quarter: 2015Q3

REPORT INFORMATION
  Report Type: Spontaneous
  Country: US (occurrence: US)
  Receive Date: 20150918
  Receipt Date: 20150918
  Transmission Date: 20151125
  Serious: No
  Sender: FDA-Public Use
  Company Number: US-RB-069715-14

PATIENT

DRUGS (8)
  1. CODEINE PHOSPHATE (TREATMENT D) [Suspect]
     Active Substance: CODEINE PHOSPHATE
     Indication: PRODUCT USED FOR UNKNOWN INDICATION
     Dosage: 20MG. WITH 240 ML OF WATER AFTER AN OVERNIGHT FAST OF AT LEAST 10 HOURS.,QD
     Route: 048
  2. ER GUAIFENESIN BI-LAYER TABLET WITH ER CODEINE PHOSPHATE COATED PELLET [Suspect]
     Active Substance: CODEINE PHOSPHATE\GUAIFENESIN
     Indication: PRODUCT USED FOR UNKNOWN INDICATION
     Dosage: 2DF. ADMINISTERED WITH 240 ML OF WATER AFTER AN OVERNIGHT FAST OF AT LEAST 10 HOURS.,FREQUENCY UNK
     Route: 048
  3. ER GUAIFENESIN BI-LAYER TABLET WITH ER CODEINE PHOSPHATE COATED PELLET [Suspect]
     Active Substance: CODEINE PHOSPHATE\GUAIFENESIN
     Indication: PRODUCT USED FOR UNKNOWN INDICATION
     Dosage: 2DF. WITH 240 ML OF WATER 30 MINUTES AFTER THE BEGINNING OF THE CONSUMPTION OF A HIGH-FAT BREAKFAST,
     Route: 048
  4. ER GUAIFENESIN BI-LAYER TABLET WITH ER CODEINE PHOSPHATE COATED PELLET [Suspect]
     Active Substance: CODEINE PHOSPHATE\GUAIFENESIN
  5. ER GUAIFENESIN BI-LAYER TABLET WITH ER CODEINE PHOSPHATE COATED PELLET [Suspect]
     Active Substance: CODEINE PHOSPHATE\GUAIFENESIN
  6. MUCINEX [Suspect]
     Active Substance: GUAIFENESIN
     Indication: PRODUCT USED FOR UNKNOWN INDICATION
     Dosage: 1200MG. WITH 240 ML OF WATER AFTER AN OVERNIGHT FAST OF AT LEAST 10 HOURS.,FREQUENCY UNK
     Route: 048
  7. ER GUAIFENESIN BI-LAYER TABLET WITH ER CODEINE PHOSPHATE COATED PELLET [Suspect]
     Active Substance: CODEINE PHOSPHATE\GUAIFENESIN
  8. ER GUAIFENESIN BI-LAYER TABLET WITH ER CODEINE PHOSPHATE COATED PELLET [Suspect]
     Active Substance: CODEINE PHOSPHATE\GUAIFENESIN
     Indication: PRODUCT USED FOR UNKNOWN INDICATION
     Dosage: 2DF. ADMINISTERED WITH 240 ML OF WATER AFTER AN OVERNIGHT FAST OF AT LEAST 10 HOURS.,FREQUENCY UNK
     Route: 048

REACTIONS (2)
  - Nausea [Recovered/Resolved]
  - Diarrhoea [Recovered/Resolved]

NARRATIVE: CASE EVENT DATE: 20130916
